FAERS Safety Report 7539492-8 (Version None)
Quarter: 2011Q2

REPORT INFORMATION
  Report Type: 
  Country: None (occurrence: None)
  Receive Date: 20110609
  Receipt Date: 20110609
  Transmission Date: 20111010
  Serious: No
  Sender: FDA-Public Use
  Company Number: None

PATIENT
  Age: 65 Year
  Sex: Female
  Weight: 63.05 kg

DRUGS (2)
  1. VENLAFAXINE HCL [Suspect]
     Indication: MENOPAUSE
     Dosage: 37.5MG BID PO
     Route: 048
  2. LEXAPRO [Suspect]
     Indication: MENOPAUSE
     Dosage: 10 QD PO
     Route: 048

REACTIONS (2)
  - INSOMNIA [None]
  - FATIGUE [None]
